FAERS Safety Report 19698256 (Version 1)
Quarter: 2021Q3

REPORT INFORMATION
  Report Type: Spontaneous
  Country: US (occurrence: US)
  Receive Date: 20210813
  Receipt Date: 20210813
  Transmission Date: 20211014
  Serious: No
  Sender: FDA-Public Use
  Company Number: US-JNJFOC-20210802752

PATIENT
  Age: 35 Year
  Sex: Female
  Weight: 88 kg

DRUGS (4)
  1. COVID?19 VACCINE [Concomitant]
     Indication: PRODUCT USED FOR UNKNOWN INDICATION
     Dosage: FIRST DOSE, LEFT ARM
     Route: 065
     Dates: start: 20210703
  2. TYLENOL [Suspect]
     Active Substance: ACETAMINOPHEN
     Indication: PREMEDICATION
     Route: 065
     Dates: start: 202107
  3. TYLENOL [Suspect]
     Active Substance: ACETAMINOPHEN
     Indication: EYE PRURITUS
  4. TYLENOL [Suspect]
     Active Substance: ACETAMINOPHEN
     Indication: EYE SWELLING

REACTIONS (2)
  - Product use in unapproved indication [Unknown]
  - Therapeutic response unexpected [Unknown]

NARRATIVE: CASE EVENT DATE: 202107
